FAERS Safety Report 16471063 (Version 1)
Quarter: 2019Q2

REPORT INFORMATION
  Report Type: Spontaneous
  Country: HU (occurrence: HU)
  Receive Date: 20190624
  Receipt Date: 20190624
  Transmission Date: 20190711
  Serious: Yes (Other)
  Sender: FDA-Public Use
  Company Number: HU-CELGENEUS-HUN-20190605570

PATIENT
  Age: 79 Year
  Sex: Male

DRUGS (1)
  1. POMALIDOMIDE [Suspect]
     Active Substance: POMALIDOMIDE
     Indication: PLASMA CELL MYELOMA
     Route: 048
     Dates: start: 201807

REACTIONS (4)
  - Neutropenia [Unknown]
  - Anaemia [Unknown]
  - Endocarditis [Unknown]
  - Platelet count decreased [Unknown]
